FAERS Safety Report 24630932 (Version 2)
Quarter: 2024Q4

REPORT INFORMATION
  Report Type: Spontaneous
  Country: PL (occurrence: PL)
  Receive Date: 20241118
  Receipt Date: 20241212
  Transmission Date: 20250115
  Serious: No
  Sender: NOVARTIS
  Company Number: PL-002147023-NVSC2024PL220733

PATIENT
  Age: 3 Year
  Sex: Female

DRUGS (2)
  1. ELTROMBOPAG OLAMINE [Suspect]
     Active Substance: ELTROMBOPAG OLAMINE
     Indication: Immune thrombocytopenia
     Dosage: UNK
     Route: 065
     Dates: start: 2017
  2. ELTROMBOPAG OLAMINE [Suspect]
     Active Substance: ELTROMBOPAG OLAMINE
     Dosage: UNK
     Route: 065
     Dates: start: 2018

REACTIONS (1)
  - Platelet count decreased [Unknown]
